FAERS Safety Report 4756900-6 (Version None)
Quarter: 2005Q3

REPORT INFORMATION
  Report Type: 
  Country: None (occurrence: None)
  Receive Date: 20050830
  Receipt Date: 20050718
  Transmission Date: 20060218
  Serious: No
  Sender: FDA-Public Use
  Company Number: US-GLAXOSMITHKLINE-A0566694A

PATIENT
  Age: 75 Year
  Sex: Male

DRUGS (9)
  1. AVODART [Suspect]
     Indication: BENIGN PROSTATIC HYPERPLASIA
     Dosage: 5MG PER DAY
     Route: 048
  2. ACTOS [Concomitant]
  3. ADVAIR DISKUS 100/50 [Concomitant]
  4. COMBIVENT [Concomitant]
  5. LISINOPRIL [Concomitant]
  6. MOBIC [Concomitant]
  7. PRAVACHOL [Concomitant]
  8. PRIMIDONE [Concomitant]
  9. SKELAXIN [Concomitant]

REACTIONS (1)
  - DRUG INEFFECTIVE [None]
